FAERS Safety Report 7686457-1 (Version None)
Quarter: 2011Q3

REPORT INFORMATION
  Report Type: 
  Country: None (occurrence: None)
  Receive Date: 20110811
  Receipt Date: 20110802
  Transmission Date: 20111222
  Serious: Yes (Other)
  Sender: FDA-Public Use
  Company Number: US-2011-10545

PATIENT
  Age: 68 Year
  Sex: Male

DRUGS (4)
  1. FLUDARABINE PHOSPHATE [Suspect]
     Indication: STEM CELL TRANSPLANT
  2. TACROLIMUS [Concomitant]
  3. MYCOPHENOLATE MOFETIL [Concomitant]
  4. BUSULFAN [Suspect]
     Indication: STEM CELL TRANSPLANT

REACTIONS (5)
  - FIBRIN DEGRADATION PRODUCTS INCREASED [None]
  - PULMONARY OEDEMA [None]
  - COAGULOPATHY [None]
  - PROTHROMBIN TIME PROLONGED [None]
  - ENGRAFTMENT SYNDROME [None]
